FAERS Safety Report 9228081 (Version 1)
Quarter: 2013Q2

REPORT INFORMATION
  Report Type: Spontaneous
  Country: IT (occurrence: None)
  Receive Date: 20130410
  Receipt Date: 20130410
  Transmission Date: 20140414
  Serious: Yes (Hospitalization)
  Sender: FDA-Public Use
  Company Number: AUR-APL-2013-02760

PATIENT
  Age: 39 Year
  Sex: Male

DRUGS (1)
  1. AMOXICILLIN (AMOXICILLIN) [Suspect]
     Indication: DENTAL CARE
     Dosage: 1 DOSE UNIT/TOTAL, ORAL
     Dates: start: 20130325, end: 20130325

REACTIONS (2)
  - Erythema [None]
  - Pruritus generalised [None]
